FAERS Safety Report 21903224 (Version 3)
Quarter: 2024Q2

REPORT INFORMATION
  Report Type: Spontaneous
  Country: CN (occurrence: CN)
  Receive Date: 20230124
  Receipt Date: 20240427
  Transmission Date: 20240716
  Serious: Yes (Hospitalization)
  Sender: FDA-Public Use
  Company Number: CN-ALLERGAN-2301491US

PATIENT
  Sex: Male

DRUGS (14)
  1. ACITRETIN [Suspect]
     Active Substance: ACITRETIN
     Indication: Erythrodermic psoriasis
     Dosage: DOSAGE TEXT: 20 MG, QD
     Route: 048
     Dates: end: 20200603
  2. ACITRETIN [Suspect]
     Active Substance: ACITRETIN
     Indication: Erythrodermic psoriasis
     Dosage: DOSAGE TEXT: UNK
     Route: 048
     Dates: start: 201611, end: 202003
  3. ACITRETIN [Suspect]
     Active Substance: ACITRETIN
     Indication: Erythrodermic psoriasis
     Route: 048
  4. ACITRETIN [Suspect]
     Active Substance: ACITRETIN
     Indication: Erythrodermic psoriasis
     Dosage: DOSAGE TEXT: UNK
     Route: 048
     Dates: start: 201610
  5. TENOFOVIR [Suspect]
     Active Substance: TENOFOVIR
     Indication: HIV infection
     Dosage: DAILY DOSE: 200.0 MG
     Route: 048
  6. SECUKINUMAB [Concomitant]
     Active Substance: SECUKINUMAB
     Indication: HIV infection
  7. LAMIVUDINE [Suspect]
     Active Substance: LAMIVUDINE
     Indication: HIV infection
     Dosage: DAILY DOSE: 100.0 MG
     Route: 048
  8. LOPINAVIR AND RITONAVIR [Suspect]
     Active Substance: LOPINAVIR\RITONAVIR
     Indication: HIV infection
     Dosage: DOSAGE TEXT: 50 MG, BID
     Route: 048
  9. Total Glucosides of Peony [Concomitant]
     Indication: Erythrodermic psoriasis
     Route: 065
  10. AMMONIUM GLYCYRRHIZATE\CYSTEINE HYDROCHLORIDE\GLYCINE [Concomitant]
     Active Substance: AMMONIUM GLYCYRRHIZATE\CYSTEINE HYDROCHLORIDE\GLYCINE
     Indication: Erythrodermic psoriasis
     Route: 065
  11. UNSPECIFIED INGREDIENT [Concomitant]
     Active Substance: UNSPECIFIED INGREDIENT
     Indication: Erythrodermic psoriasis
     Route: 065
  12. ETANERCEPT [Concomitant]
     Active Substance: ETANERCEPT
     Indication: Psoriatic arthropathy
     Dosage: DOSAGE TEXT: 25 MG, Q2WEEKS
     Route: 058
     Dates: start: 2020, end: 202102
  13. ETANERCEPT [Concomitant]
     Active Substance: ETANERCEPT
     Indication: Psoriatic arthropathy
     Dosage: DOSAGE TEXT: 25 MG, Q WEEK
     Route: 058
     Dates: start: 2020, end: 2020
  14. ETANERCEPT [Concomitant]
     Active Substance: ETANERCEPT
     Indication: Psoriatic arthropathy
     Dosage: DOSAGE TEXT: 25 MG, BI-WEEKLY
     Route: 058
     Dates: start: 20200507, end: 2020

REACTIONS (6)
  - Psoriatic arthropathy [Recovered/Resolved]
  - Therapeutic product effect incomplete [Unknown]
  - Psoriatic arthropathy [Recovered/Resolved]
  - Therapeutic product effect decreased [Unknown]
  - Psoriasis [Unknown]
  - Therapeutic response decreased [Unknown]

NARRATIVE: CASE EVENT DATE: 20200301
